FAERS Safety Report 23194070 (Version 2)
Quarter: 2023Q4

REPORT INFORMATION
  Report Type: Report from Study
  Country: US (occurrence: US)
  Receive Date: 20231117
  Receipt Date: 20231121
  Transmission Date: 20240110
  Serious: Yes (Other)
  Sender: FDA-Public Use
  Company Number: US-ABBVIE-5379036

PATIENT
  Sex: Female

DRUGS (22)
  1. RINVOQ [Suspect]
     Active Substance: UPADACITINIB
     Indication: Rheumatoid arthritis
     Dosage: STRENGTH: 15 MG?STOP DATE: 2023
     Route: 048
     Dates: start: 20230720
  2. RINVOQ [Suspect]
     Active Substance: UPADACITINIB
     Indication: Rheumatoid arthritis
     Dosage: STRENGTH: 15 MG
     Route: 048
     Dates: start: 202310
  3. RINVOQ [Suspect]
     Active Substance: UPADACITINIB
     Indication: Rheumatoid arthritis
     Dosage: STRENGTH: 15 MG?FIRST ADMIN DATE: 2023
     Route: 048
     Dates: end: 20230920
  4. MAGNESIUM [Concomitant]
     Active Substance: MAGNESIUM
     Indication: Product used for unknown indication
  5. ACETAMINOPHEN\HYDROCODONE [Concomitant]
     Active Substance: ACETAMINOPHEN\HYDROCODONE
     Indication: Rheumatoid arthritis
     Dosage: AS NEEDED
  6. CALCIUM [Concomitant]
     Active Substance: CALCIUM
     Indication: Product used for unknown indication
  7. HYDROCHLOROTHIAZIDE [Concomitant]
     Active Substance: HYDROCHLOROTHIAZIDE
     Indication: Oedema peripheral
  8. VITAMIN C [Concomitant]
     Active Substance: ASCORBIC ACID
     Indication: Product used for unknown indication
  9. XARELTO [Concomitant]
     Active Substance: RIVAROXABAN
     Indication: Atrial fibrillation
  10. METAXALONE [Concomitant]
     Active Substance: METAXALONE
     Indication: Fibromyalgia
     Dosage: AS NEEDED
  11. RAYOS [Concomitant]
     Active Substance: PREDNISONE
     Indication: Rheumatoid arthritis
     Dosage: LONG ACTING PREDNISONE?AS NEEDED
  12. ALBUTEROL [Concomitant]
     Active Substance: ALBUTEROL
     Indication: Bronchial hyperreactivity
     Dosage: INHALER?AS NEEDED
  13. VITAMIN B [Concomitant]
     Active Substance: VITAMIN B
     Indication: Neuropathy peripheral
  14. BUDESONIDE [Concomitant]
     Active Substance: BUDESONIDE
     Indication: Nasal irrigation
     Dosage: EVERY EVENING?WITH SALINE AND BACTROBAN OINTMENT COMBINATION
  15. LASIX [Concomitant]
     Active Substance: FUROSEMIDE
     Indication: Oedema
     Dosage: AS NEEDED
  16. ZINC [Concomitant]
     Active Substance: PYRITHIONE ZINC\ZINC\ZINC CHLORIDE
     Indication: Product used for unknown indication
  17. OCUVITE [Concomitant]
     Active Substance: VITAMINS
     Indication: Eye disorder
     Dosage: ADULTS
  18. GABAPENTIN [Concomitant]
     Active Substance: GABAPENTIN
     Indication: Neuropathy peripheral
  19. COLACE [Concomitant]
     Active Substance: DOCUSATE SODIUM
     Indication: Constipation
  20. CLARITIN [Concomitant]
     Active Substance: LORATADINE
     Indication: Hypersensitivity
  21. VITAMIN D3 [Concomitant]
     Active Substance: CHOLECALCIFEROL
     Indication: Product used for unknown indication
  22. DILTIAZEM HYDROCHLORIDE [Concomitant]
     Active Substance: DILTIAZEM HYDROCHLORIDE
     Indication: Hypertension
     Dosage: EXTENDED-RELEASE

REACTIONS (21)
  - Haemangioma of bone [Unknown]
  - Lymphocytosis [Unknown]
  - Oesophageal pain [Recovered/Resolved]
  - Neutropenia [Unknown]
  - Pain [Recovering/Resolving]
  - Sinusitis [Recovered/Resolved]
  - Osteolysis [Unknown]
  - Back pain [Recovering/Resolving]
  - Metamyelocyte count decreased [Unknown]
  - Nausea [Recovered/Resolved]
  - White blood cell count abnormal [Recovered/Resolved]
  - Fibromyalgia [Recovering/Resolving]
  - C-reactive protein increased [Recovered/Resolved]
  - Increased bronchial secretion [Recovered/Resolved]
  - Plasma cell myeloma [Unknown]
  - Magnetic resonance imaging spinal abnormal [Unknown]
  - Epistaxis [Recovered/Resolved]
  - Monoclonal gammopathy [Unknown]
  - Upper-airway cough syndrome [Recovered/Resolved]
  - Lymphocyte count abnormal [Recovered/Resolved]
  - Arthralgia [Recovering/Resolving]

NARRATIVE: CASE EVENT DATE: 20230101
